FAERS Safety Report 20123860 (Version 1)
Quarter: 2021Q4

REPORT INFORMATION
  Report Type: Other
  Country: IT (occurrence: IT)
  Receive Date: 20211129
  Receipt Date: 20211129
  Transmission Date: 20220303
  Serious: Yes (Other)
  Sender: FDA-Public Use
  Company Number: IT-ROCHE-2917552

PATIENT
  Age: 36 Year
  Sex: Female

DRUGS (2)
  1. RITUXIMAB [Suspect]
     Active Substance: RITUXIMAB
     Indication: Immunoadsorption therapy
     Dosage: 4 DOSES IN TWO WEEKS
     Route: 065
  2. ENOXIMONE [Concomitant]
     Active Substance: ENOXIMONE
     Dosage: 2-2.5 MCG/KG/MIN
     Route: 042

REACTIONS (2)
  - Sepsis [Recovered/Resolved]
  - Off label use [Unknown]
